FAERS Safety Report 6065288-2 (Version None)
Quarter: 2009Q1

REPORT INFORMATION
  Report Type: 
  Country: None (occurrence: None)
  Receive Date: 20090130
  Receipt Date: 20090115
  Transmission Date: 20090719
  Serious: Yes (Other)
  Sender: FDA-Public Use
  Company Number: 2009S1000895

PATIENT
  Age: 56 Year

DRUGS (2)
  1. AZATHIOPRINE [Suspect]
     Indication: RENAL TRANSPLANT
  2. PREDNISOLONE [Suspect]
     Indication: RENAL TRANSPLANT

REACTIONS (4)
  - ANGIOCENTRIC LYMPHOMA [None]
  - EPSTEIN-BARR VIRUS INFECTION [None]
  - NECROSIS [None]
  - WEIGHT DECREASED [None]
